FAERS Safety Report 6091850-7 (Version None)
Quarter: 2009Q1

REPORT INFORMATION
  Report Type: 
  Country: None (occurrence: None)
  Receive Date: 20090225
  Receipt Date: 20080812
  Transmission Date: 20090719
  Serious: No
  Sender: FDA-Public Use
  Company Number: A0742213A

PATIENT
  Age: 90 Year
  Sex: Female

DRUGS (16)
  1. VALTREX [Suspect]
     Indication: HERPES ZOSTER
     Dosage: 1000MG THREE TIMES PER DAY
     Route: 048
     Dates: start: 20080807
  2. NORVASC [Concomitant]
  3. ASPIRIN [Concomitant]
  4. DULCOLAX [Concomitant]
  5. CIPRO [Concomitant]
  6. CARDIZEM CD [Concomitant]
  7. HALDOL [Concomitant]
  8. SYNTHROID [Concomitant]
  9. LIDOCAINE [Concomitant]
  10. NAMENDA [Concomitant]
  11. NIACIN [Concomitant]
  12. PRILOSEC [Concomitant]
  13. SEROQUEL [Concomitant]
  14. EXELON [Concomitant]
  15. REQUIP [Concomitant]
  16. ZOLOFT [Concomitant]

REACTIONS (1)
  - PLATELET COUNT DECREASED [None]
